FAERS Safety Report 4967091-0 (Version None)
Quarter: 2006Q2

REPORT INFORMATION
  Report Type: 
  Country: None (occurrence: None)
  Receive Date: 20060403
  Receipt Date: 20060321
  Transmission Date: 20061013
  Serious: Yes (Other)
  Sender: FDA-Public Use
  Company Number: 2006039457

PATIENT
  Age: 85 Year
  Sex: Male

DRUGS (5)
  1. DETROL LA [Suspect]
     Indication: HYPERTONIC BLADDER
     Dosage: 4 MG (4 MG, 1 IN 1 D), ORAL
     Route: 048
     Dates: start: 20051001
  2. SPIRONOLACTONE [Concomitant]
  3. ARICEPT [Concomitant]
  4. SEROQUEL [Concomitant]
  5. DIAZEPAM [Concomitant]

REACTIONS (6)
  - BLINDNESS UNILATERAL [None]
  - CATARACT [None]
  - CEREBROVASCULAR ACCIDENT [None]
  - EYE HAEMORRHAGE [None]
  - EYE SWELLING [None]
  - GLAUCOMA [None]
